FAERS Safety Report 4379650-7 (Version None)
Quarter: 2004Q2

REPORT INFORMATION
  Report Type: 
  Country: None (occurrence: None)
  Receive Date: 20040614
  Receipt Date: 20040526
  Transmission Date: 20050107
  Serious: Yes (Hospitalization)
  Sender: FDA-Public Use
  Company Number: 8006404

PATIENT
  Age: 66 Year
  Sex: Male

DRUGS (4)
  1. KEPPRA [Suspect]
     Dates: start: 20040101, end: 20040101
  2. VALPROIC ACID [Concomitant]
  3. PHENYTOIN [Concomitant]
  4. STATIN [Concomitant]

REACTIONS (3)
  - FALL [None]
  - FATIGUE [None]
  - PLATELET COUNT DECREASED [None]
